FAERS Safety Report 8612909-3 (Version None)
Quarter: 2012Q3

REPORT INFORMATION
  Report Type: 
  Country: None (occurrence: None)
  Receive Date: 20120822
  Receipt Date: 20120207
  Transmission Date: 20120928
  Serious: No
  Sender: FDA-Public Use
  Company Number: US-ALLERGAN-1201835US

PATIENT
  Sex: Male

DRUGS (3)
  1. SANCTURA XR [Suspect]
     Indication: PRODUCT USED FOR UNKNOWN INDICATION
     Dosage: 1 DF, QHS
     Route: 048
     Dates: start: 20120101
  2. SIMVASTATIN [Concomitant]
     Indication: HYPERCHOLESTEROLAEMIA
     Dosage: 20 MG, QD
     Route: 048
  3. ANTARA (MICRONIZED) [Concomitant]
     Indication: HYPERTRIGLYCERIDAEMIA
     Dosage: 30 MG, QD
     Route: 048

REACTIONS (1)
  - DRY MOUTH [None]
